FAERS Safety Report 8998721 (Version 1)
Quarter: 2013Q1

REPORT INFORMATION
  Report Type: Spontaneous
  Country: US (occurrence: US)
  Receive Date: 20130103
  Receipt Date: 20130103
  Transmission Date: 20140127
  Serious: No
  Sender: FDA-Public Use
  Company Number: US-PFIZER INC-2012333212

PATIENT
  Age: 60 Year
  Sex: Female
  Weight: 92.97 kg

DRUGS (17)
  1. IBUPROFEN [Suspect]
     Indication: BACK PAIN
     Dosage: UNK
  2. TOPROL XL [Concomitant]
     Indication: CARDIAC DISORDER
     Dosage: 100 MG, DAILY
  3. IMDUR [Concomitant]
     Indication: CARDIAC DISORDER
     Dosage: 60 MG, 2X/DAY
  4. PLAVIX [Concomitant]
     Indication: ARTERIOSCLEROSIS
     Dosage: 75 MG, DAILY
  5. PLAVIX [Concomitant]
     Indication: ATRIOVENTRICULAR BLOCK
  6. DYAZIDE [Concomitant]
     Indication: ARTERIOSCLEROSIS
     Dosage: 37.5/25 MG DAILY
  7. DYAZIDE [Concomitant]
     Indication: ATRIOVENTRICULAR BLOCK
  8. PRAVACHOL [Concomitant]
     Indication: BLOOD CHOLESTEROL
     Dosage: 80 MG, DAILY
  9. XANAX [Concomitant]
     Indication: NERVOUS SYSTEM DISORDER
     Dosage: 0.25 MG, 2X/DAY
  10. ZOLOFT [Concomitant]
     Indication: DEPRESSION
     Dosage: 100 MG, DAILY
  11. CYMBALTA [Concomitant]
     Indication: DEPRESSION
     Dosage: 90 MG (60 MG PLUS 30 MG), DAILY
  12. NORVASC [Concomitant]
     Indication: HYPERTENSION
     Dosage: 5 MG, 2X/DAY
  13. FORMOTEROL FUMARATE/MOMETASONE FUROATE [Concomitant]
     Indication: ASTHMA
     Dosage: 200/5 MCG, TWO PUFFS 2X/DAY
  14. NITROTAB [Concomitant]
     Indication: CHEST PAIN
     Dosage: 0.4 MG, AS NEEDED
  15. ZYRTEC [Concomitant]
     Indication: HYPERSENSITIVITY
     Dosage: 10 MG, DAILY
  16. ZYRTEC [Concomitant]
     Indication: ASTHMA
  17. NOVOLIN R [Concomitant]
     Dosage: UNK

REACTIONS (1)
  - Rash generalised [Unknown]
